FAERS Safety Report 11177190 (Version 1)
Quarter: 2015Q2

REPORT INFORMATION
  Report Type: Spontaneous
  Country: DE (occurrence: None)
  Receive Date: 20150608
  Receipt Date: 20150608
  Transmission Date: 20150821
  Serious: Yes (Hospitalization)
  Sender: FDA-Public Use
  Company Number: DE-002002

PATIENT
  Age: 38 Year
  Sex: Female
  Weight: 33.2 kg

DRUGS (8)
  1. CLEXANE [Concomitant]
     Active Substance: ENOXAPARIN SODIUM
  2. HUMIRA [Concomitant]
     Active Substance: ADALIMUMAB
  3. SANDOSTATIN [Concomitant]
     Active Substance: OCTREOTIDE ACETATE
  4. BONIVA [Concomitant]
     Active Substance: IBANDRONATE SODIUM
  5. KEPPRA [Concomitant]
     Active Substance: LEVETIRACETAM
  6. PREDNISOLON [Concomitant]
     Active Substance: PREDNISOLONE
  7. REVESTIVE (REVESTIVE) [Suspect]
     Active Substance: TEDUGLUTIDE
     Indication: SHORT-BOWEL SYNDROME
     Route: 058
     Dates: start: 20150331
  8. REVESTIVE (REVESTIVE) [Suspect]
     Active Substance: TEDUGLUTIDE
     Indication: CROHN^S DISEASE
     Route: 058
     Dates: start: 20150331

REACTIONS (2)
  - Pneumonia [None]
  - Sepsis [None]

NARRATIVE: CASE EVENT DATE: 20150523
